FAERS Safety Report 5383354-1 (Version None)
Quarter: 2007Q3

REPORT INFORMATION
  Report Type: 
  Country: None (occurrence: None)
  Receive Date: 20070710
  Receipt Date: 20070627
  Transmission Date: 20080115
  Serious: Yes (Hospitalization)
  Sender: FDA-Public Use
  Company Number: IT-ELI_LILLY_AND_COMPANY-IT200707000520

PATIENT
  Age: 81 Year
  Sex: Female

DRUGS (9)
  1. CYMBALTA [Suspect]
     Indication: DEPRESSION
     Dosage: 60 MG, UNK
     Route: 048
     Dates: start: 20070405, end: 20070508
  2. COUMADIN [Concomitant]
     Indication: ATRIAL FIBRILLATION
     Dosage: 2.5 MG, QOD
     Route: 048
     Dates: start: 20050501, end: 20070508
  3. COUMADIN [Concomitant]
     Dosage: 1.25 MG, QOD
     Route: 048
     Dates: start: 20050501, end: 20070508
  4. LASIX [Concomitant]
     Dosage: 50 MG, UNK
     Route: 048
  5. DEPONIT [Concomitant]
     Dosage: 5 MG, UNK
     Route: 062
  6. LANOXIN [Concomitant]
     Dosage: 62.5 UG, UNK
     Route: 048
  7. KANRENOL [Concomitant]
     Dosage: 25 MG, UNK
     Route: 048
  8. OMEPRAZOLE [Concomitant]
     Route: 048
  9. LEXOTAN [Concomitant]
     Route: 048

REACTIONS (1)
  - GINGIVAL BLEEDING [None]
